FAERS Safety Report 15158929 (Version 1)
Quarter: 2018Q3

REPORT INFORMATION
  Report Type: Spontaneous
  Country: BR (occurrence: BR)
  Receive Date: 20180718
  Receipt Date: 20180718
  Transmission Date: 20181010
  Serious: Yes (Other)
  Sender: FDA-Public Use
  Company Number: BR-PFIZER INC-2018282981

PATIENT
  Age: 75 Year
  Sex: Female

DRUGS (2)
  1. SUTENT [Suspect]
     Active Substance: SUNITINIB MALATE
     Indication: RENAL CANCER
     Dosage: UNK
     Dates: start: 20180502
  2. SUTENT [Suspect]
     Active Substance: SUNITINIB MALATE
     Dosage: TAKES 2 WEEKS AND RESTS 1 WEEK

REACTIONS (9)
  - Hypothyroidism [Recovered/Resolved]
  - Weight decreased [Unknown]
  - Eye infection [Unknown]
  - Vomiting [Unknown]
  - Diarrhoea [Unknown]
  - Tearfulness [Unknown]
  - Oral disorder [Unknown]
  - Drug-induced liver injury [Unknown]
  - Dizziness [Unknown]
